FAERS Safety Report 5022047-7 (Version None)
Quarter: 2006Q2

REPORT INFORMATION
  Report Type: 
  Country: None (occurrence: None)
  Receive Date: 20060605
  Receipt Date: 20060519
  Transmission Date: 20061013
  Serious: Yes (Hospitalization)
  Sender: FDA-Public Use
  Company Number: 2006VX000457

PATIENT
  Age: 55 Year
  Sex: Female
  Weight: 70.7611 kg

DRUGS (9)
  1. INTERFERON ALFACON-1 [Suspect]
     Indication: HEPATITIS C
     Dosage: 15 UG; QD; SC
     Route: 058
     Dates: start: 20060417, end: 20060514
  2. RIBAVIRIN [Concomitant]
  3. ESTRATEST [Concomitant]
  4. ADVAIR DISKUS 100/50 [Concomitant]
  5. FUROSEMIDE [Concomitant]
  6. CYMBALTA [Concomitant]
  7. ZYRTEC-D 12 HOUR [Concomitant]
  8. LEVAQUIN [Concomitant]
  9. HYDROCODONE [Concomitant]

REACTIONS (5)
  - ABSCESS [None]
  - FATIGUE [None]
  - HAEMOGLOBIN DECREASED [None]
  - HEADACHE [None]
  - NAUSEA [None]
